FAERS Safety Report 8962312 (Version 1)
Quarter: 2012Q4

REPORT INFORMATION
  Report Type: Spontaneous
  Country: US (occurrence: None)
  Receive Date: 20121203
  Receipt Date: 20121203
  Transmission Date: 20130627
  Serious: Yes (Other)
  Sender: FDA-Public Use
  Company Number: ACO_33103_2012

PATIENT
  Age: 39 Year
  Sex: Female
  Weight: 108.4 kg

DRUGS (7)
  1. AMPYRA (DALFAMPRIDINE) TABLET, 10MG [Suspect]
     Indication: BALANCE DISORDER
     Route: 048
     Dates: start: 201210, end: 2012
  2. AMPYRA (DALFAMPRIDINE) TABLET, 10MG [Suspect]
     Indication: BALANCE DISORDER
     Route: 048
     Dates: start: 2012
  3. LANTUS (INSULIN GLARGINE) [Concomitant]
  4. REBIF (INTERFERON BETA-1A) [Concomitant]
  5. METFORMIN (METFORMIN) [Concomitant]
  6. HYDROCHLOROTHIAZIDE (HYDROCHLOROTHIAZIDE) [Concomitant]
  7. LISINOPRIL (LISINOPRIL) [Concomitant]

REACTIONS (4)
  - Urinary retention [None]
  - Hypoaesthesia [None]
  - Dysuria [None]
  - Inappropriate schedule of drug administration [None]
